FAERS Safety Report 13424427 (Version 2)
Quarter: 2017Q2

REPORT INFORMATION
  Report Type: Spontaneous
  Country: US (occurrence: US)
  Receive Date: 20170410
  Receipt Date: 20170509
  Transmission Date: 20170830
  Serious: No
  Sender: FDA-Public Use
  Company Number: US-SHIRE-US201707801

PATIENT
  Age: 45 Year
  Sex: Female
  Weight: 47.62 kg

DRUGS (2)
  1. XIIDRA [Suspect]
     Active Substance: LIFITEGRAST
     Indication: DRY EYE
     Dosage: 1 GTT (EACH EYE), 2X/DAY:BID
     Route: 047
     Dates: start: 20160922, end: 20170313
  2. SYSTANE (HYPROMELLOSE 2910 (4000 MPA.S)) [Concomitant]
     Active Substance: HYPROMELLOSE 2910 (4000 MPA.S)
     Indication: DRY EYE
     Dosage: 1 GTT, 4X/DAY:QID
     Route: 047

REACTIONS (8)
  - Ocular hyperaemia [Unknown]
  - Dermatitis contact [Recovered/Resolved]
  - Eye irritation [Unknown]
  - Eyelid margin crusting [Unknown]
  - Eye pruritus [Recovered/Resolved]
  - Eye swelling [Unknown]
  - Eyelid oedema [Unknown]
  - Lacrimation increased [Unknown]

NARRATIVE: CASE EVENT DATE: 201702
